FAERS Safety Report 23481446 (Version 2)
Quarter: 2024Q1

REPORT INFORMATION
  Report Type: Report from Study
  Country: GB (occurrence: GB)
  Receive Date: 20240205
  Receipt Date: 20240220
  Transmission Date: 20240409
  Serious: Yes (Hospitalization)
  Sender: FDA-Public Use
  Company Number: GB-ULTRAGENYX PHARMACEUTICAL INC.-GB-UGX-24-00161

PATIENT
  Age: 3 Year
  Sex: Male
  Weight: 18.6 kg

DRUGS (5)
  1. TRIHEPTANOIN [Suspect]
     Active Substance: TRIHEPTANOIN
     Indication: Pyruvate carboxylase deficiency
     Dosage: 35 MILLILITER, QD
     Route: 048
     Dates: start: 20210126, end: 20210521
  2. TRIHEPTANOIN [Suspect]
     Active Substance: TRIHEPTANOIN
     Dosage: 5 MILLILITER, QD
     Route: 048
     Dates: start: 20210611
  3. TRIHEPTANOIN [Suspect]
     Active Substance: TRIHEPTANOIN
     Dosage: 35 MILLILITER, QD
     Route: 048
     Dates: start: 202108
  4. FAT SOLUBLE VITAMINS NOS [Concomitant]
     Indication: Supplementation therapy
     Dosage: UNK
  5. JUGLANS REGIA SEED OIL [Concomitant]
     Indication: Nutritional supplementation
     Dosage: UNK

REACTIONS (5)
  - Lactic acidosis [Recovered/Resolved]
  - Metabolic acidosis [Recovered/Resolved]
  - Upper respiratory tract infection [Recovered/Resolved]
  - Decreased appetite [Recovered/Resolved]
  - Vomiting [Recovered/Resolved]

NARRATIVE: CASE EVENT DATE: 20210521
